FAERS Safety Report 13242989 (Version 3)
Quarter: 2017Q1

REPORT INFORMATION
  Report Type: Spontaneous
  Country: US (occurrence: US)
  Receive Date: 20170216
  Receipt Date: 20170228
  Transmission Date: 20170428
  Serious: Yes (Other)
  Sender: FDA-Public Use
  Company Number: US-PFIZER INC-2017066473

PATIENT
  Age: 22 Month
  Sex: Female

DRUGS (1)
  1. LIDOCAINE HCL [Suspect]
     Active Substance: LIDOCAINE HYDROCHLORIDE
     Indication: LUMBAR PUNCTURE
     Dosage: UNK
     Dates: start: 201611

REACTIONS (1)
  - Embolia cutis medicamentosa [Unknown]

NARRATIVE: CASE EVENT DATE: 201611
